FAERS Safety Report 7969043-5 (Version None)
Quarter: 2011Q4

REPORT INFORMATION
  Report Type: 
  Country: None (occurrence: None)
  Receive Date: 20111209
  Receipt Date: 20111128
  Transmission Date: 20120403
  Serious: Yes (Other)
  Sender: FDA-Public Use
  Company Number: PHHY2011JP105408

PATIENT
  Age: 47 Year
  Sex: Male

DRUGS (2)
  1. CYCLOSPORINE [Suspect]
     Indication: POLYMYOSITIS
     Dosage: UNK UKN, UNK
     Route: 048
     Dates: start: 20090101
  2. PREDNISOLONE [Suspect]
     Indication: POLYMYOSITIS
     Dosage: UNK UKN, UNK
     Route: 048
     Dates: start: 20091001

REACTIONS (2)
  - INTUSSUSCEPTION [None]
  - VITELLO-INTESTINAL DUCT REMNANT [None]
